FAERS Safety Report 23725202 (Version 1)
Quarter: 2024Q2

REPORT INFORMATION
  Report Type: Spontaneous
  Country: FR (occurrence: None)
  Receive Date: 20240410
  Receipt Date: 20240410
  Transmission Date: 20240716
  Serious: Yes (Hospitalization)
  Sender: FDA-Public Use
  Company Number: 2024A082553

PATIENT
  Age: 72 Year
  Sex: Female
  Weight: 60 kg

DRUGS (10)
  1. TAGRISSO [Suspect]
     Active Substance: OSIMERTINIB
     Indication: Lung neoplasm malignant
     Route: 048
     Dates: start: 20221024, end: 20240101
  2. EFFERALGAN [Suspect]
     Active Substance: ACETAMINOPHEN
     Indication: Pain
     Route: 048
     Dates: end: 20240202
  3. CYAMEMAZINE [Concomitant]
     Active Substance: CYAMEMAZINE
  4. QUETIAPINE [Concomitant]
     Active Substance: QUETIAPINE
  5. ELIQUIS [Concomitant]
     Active Substance: APIXABAN
  6. ALPRAZOLAM [Concomitant]
     Active Substance: ALPRAZOLAM
  7. TIAPRIDE HYDROCHLORIDE [Concomitant]
     Active Substance: TIAPRIDE HYDROCHLORIDE
  8. HALOPERIDOL [Concomitant]
     Active Substance: HALOPERIDOL
  9. MIRTAZAPINE [Concomitant]
     Active Substance: MIRTAZAPINE
  10. TRIHEXYPHENIDYL HYDROCHLORIDE [Concomitant]
     Active Substance: TRIHEXYPHENIDYL HYDROCHLORIDE

REACTIONS (3)
  - Acute kidney injury [Recovered/Resolved]
  - Hepatitis [Recovered/Resolved]
  - Thrombocytopenia [Recovered/Resolved]

NARRATIVE: CASE EVENT DATE: 20240101
